FAERS Safety Report 6952449-0 (Version None)
Quarter: 2010Q3

REPORT INFORMATION
  Report Type: 
  Country: None (occurrence: None)
  Receive Date: 20100829
  Receipt Date: 20100430
  Transmission Date: 20110219
  Serious: No
  Sender: FDA-Public Use
  Company Number: US-ABBOTT-10P-163-0642707-00

PATIENT
  Sex: Male

DRUGS (8)
  1. NIASPAN [Suspect]
     Indication: HIGH DENSITY LIPOPROTEIN DECREASED
     Dosage: QHS
     Route: 048
     Dates: start: 20100101, end: 20100101
  2. NIASPAN [Suspect]
     Indication: BLOOD TRIGLYCERIDES INCREASED
     Route: 048
     Dates: start: 20100101
  3. LOVAZA [Concomitant]
     Indication: BLOOD TRIGLYCERIDES INCREASED
     Route: 048
  4. NORVASC [Concomitant]
     Indication: HYPERTENSION
     Route: 048
  5. METOPROLOL [Concomitant]
     Indication: HYPERTENSION
     Route: 048
  6. CATAPRES [Concomitant]
     Indication: HYPERTENSION
     Dosage: PATCH
     Route: 062
  7. LISINOPRIL [Concomitant]
     Indication: HYPERTENSION
     Route: 048
  8. TELMISARTAN [Concomitant]
     Indication: HYPERTENSION
     Route: 048

REACTIONS (5)
  - FEELING HOT [None]
  - FLUSHING [None]
  - PAIN [None]
  - PARAESTHESIA [None]
  - SKIN BURNING SENSATION [None]
